FAERS Safety Report 9560188 (Version 2)
Quarter: 2013Q4

REPORT INFORMATION
  Report Type: Spontaneous
  Country: US (occurrence: US)
  Receive Date: 20130927
  Receipt Date: 20131115
  Transmission Date: 20140711
  Serious: No
  Sender: FDA-Public Use
  Company Number: US-BIOGENIDEC-2013BI049126

PATIENT
  Age: 51 Year
  Sex: Female

DRUGS (1)
  1. TECFIDERA [Suspect]
     Indication: MULTIPLE SCLEROSIS
     Route: 048
     Dates: start: 20130521

REACTIONS (5)
  - Heart rate increased [Recovered/Resolved]
  - Palpitations [Unknown]
  - Hypertension [Unknown]
  - Flushing [Recovered/Resolved]
  - Dysgraphia [Not Recovered/Not Resolved]
